FAERS Safety Report 7717309-6 (Version None)
Quarter: 2011Q3

REPORT INFORMATION
  Report Type: 
  Country: None (occurrence: None)
  Receive Date: 20110818
  Receipt Date: 20110712
  Transmission Date: 20111222
  Serious: Yes (Other)
  Sender: FDA-Public Use
  Company Number: 1000022109

PATIENT
  Age: 43 Year
  Sex: Male

DRUGS (1)
  1. VIIBRYD [Suspect]
     Dosage: 10 MG (10 MG, 1 IN 1 D), ORAL 20 MG (20 MG 1 IN 1 D), ORAL
     Route: 048

REACTIONS (3)
  - SUICIDAL IDEATION [None]
  - INSOMNIA [None]
  - CRYING [None]
